APPROVED DRUG PRODUCT: EXIDINE
Active Ingredient: CHLORHEXIDINE GLUCONATE
Strength: 2%
Dosage Form/Route: SOLUTION;TOPICAL
Application: N019422 | Product #001
Applicant: XTTRIUM LABORATORIES INC
Approved: Dec 17, 1985 | RLD: Yes | RS: Yes | Type: OTC